FAERS Safety Report 4772930-2 (Version None)
Quarter: 2005Q3

REPORT INFORMATION
  Report Type: 
  Country: None (occurrence: None)
  Receive Date: 20050916
  Receipt Date: 20050901
  Transmission Date: 20060218
  Serious: Yes (Hospitalization)
  Sender: FDA-Public Use
  Company Number: 217637

PATIENT
  Age: 62 Year
  Sex: Male

DRUGS (1)
  1. AVASTIN [Suspect]
     Indication: COLORECTAL CANCER METASTATIC
     Dosage: 420 MG, Q2W, INTRAVENOUS
     Route: 042
     Dates: start: 20050202

REACTIONS (2)
  - ESCHERICHIA URINARY TRACT INFECTION [None]
  - PYREXIA [None]
